FAERS Safety Report 5645153-2 (Version None)
Quarter: 2008Q1

REPORT INFORMATION
  Report Type: 
  Country: None (occurrence: None)
  Receive Date: 20080229
  Receipt Date: 20080218
  Transmission Date: 20080703
  Serious: Yes (Hospitalization)
  Sender: FDA-Public Use
  Company Number: CA-AVENTIS-200810840EU

PATIENT
  Age: 45 Year
  Sex: Male

DRUGS (6)
  1. DESIPRAMINE HCL [Suspect]
     Dosage: DOSE: 50MG AND 75MG ON ALTERNATIVE DAYS
  2. DESIPRAMINE HCL [Suspect]
  3. VENLAFAXINE HCL [Suspect]
     Indication: ANXIETY
  4. VENLAFAXINE HCL [Suspect]
  5. VENLAFAXINE HCL [Suspect]
     Indication: DEPRESSION
  6. VENLAFAXINE HCL [Suspect]

REACTIONS (10)
  - AGGRESSION [None]
  - AGITATION [None]
  - DRUG INTERACTION [None]
  - FLIGHT OF IDEAS [None]
  - HALLUCINATION, VISUAL [None]
  - HOMICIDAL IDEATION [None]
  - IRRITABILITY [None]
  - MANIA [None]
  - PANIC ATTACK [None]
  - RAPID EYE MOVEMENTS SLEEP ABNORMAL [None]
